FAERS Safety Report 21475469 (Version 1)
Quarter: 2022Q4

REPORT INFORMATION
  Report Type: Spontaneous
  Country: US (occurrence: US)
  Receive Date: 20221019
  Receipt Date: 20221019
  Transmission Date: 20230112
  Serious: No
  Sender: FDA-Public Use
  Company Number: US-ALLERGAN-2201220US

PATIENT
  Age: 71 Year
  Sex: Female

DRUGS (8)
  1. LINZESS [Suspect]
     Active Substance: LINACLOTIDE
     Indication: Constipation
     Dosage: 145 ?G, QAM
     Route: 048
     Dates: start: 202111
  2. MIRALAX [Concomitant]
     Active Substance: POLYETHYLENE GLYCOL 3350
     Indication: Constipation
  3. BISACODYL [Concomitant]
     Active Substance: BISACODYL
     Indication: Constipation
  4. IBUGARD [Concomitant]
     Indication: Constipation
  5. CLONIDINE [Concomitant]
     Active Substance: CLONIDINE
     Indication: Hypertension
     Dosage: 0.2 MG
     Route: 048
  6. AMLODIPINE\VALSARTAN [Concomitant]
     Active Substance: AMLODIPINE\VALSARTAN
     Indication: Hypertension
  7. ATORVASTATIN [Concomitant]
     Active Substance: ATORVASTATIN
     Indication: Blood cholesterol increased
     Dosage: 20 MG
  8. ASPIRIN [Concomitant]
     Active Substance: ASPIRIN
     Indication: Cardiovascular event prophylaxis

REACTIONS (3)
  - Gastrointestinal sounds abnormal [Not Recovered/Not Resolved]
  - Abdominal distension [Not Recovered/Not Resolved]
  - Therapeutic product effect decreased [Unknown]

NARRATIVE: CASE EVENT DATE: 20211101
